FAERS Safety Report 9917727 (Version 2)
Quarter: 2014Q1

REPORT INFORMATION
  Report Type: Spontaneous
  Country: ES (occurrence: GB)
  Receive Date: 20140221
  Receipt Date: 20140328
  Transmission Date: 20141002
  Serious: Yes (Other)
  Sender: FDA-Public Use
  Company Number: GB-FRI-1000054463

PATIENT
  Age: 6 Decade
  Sex: Female

DRUGS (8)
  1. ACLIDINIUM [Suspect]
     Indication: CHRONIC OBSTRUCTIVE PULMONARY DISEASE
     Dates: start: 20140125, end: 20140127
  2. ZANTAC [Concomitant]
  3. VENTOLIN [Concomitant]
  4. SERTRALINE [Concomitant]
  5. QUININE SULFATE [Concomitant]
  6. MEPRADEC [Concomitant]
  7. ATARAX [Concomitant]
  8. ASPIRIN [Concomitant]

REACTIONS (1)
  - Rash generalised [Recovered/Resolved]
